FAERS Safety Report 15919841 (Version 4)
Quarter: 2019Q2

REPORT INFORMATION
  Report Type: Spontaneous
  Country: CA (occurrence: CA)
  Receive Date: 20190205
  Receipt Date: 20190417
  Transmission Date: 20190711
  Serious: Yes (Hospitalization)
  Sender: FDA-Public Use
  Company Number: CA-PFIZER INC-2018364033

PATIENT
  Age: 45 Year
  Sex: Female

DRUGS (2)
  1. XELJANZ [Suspect]
     Active Substance: TOFACITINIB CITRATE
     Dosage: UNK, 2X/DAY
     Dates: start: 20181203
  2. XELJANZ [Suspect]
     Active Substance: TOFACITINIB CITRATE
     Dosage: UNK, 2X/DAY
     Dates: end: 20181110

REACTIONS (9)
  - Acne pustular [Unknown]
  - Dizziness [Unknown]
  - Arthritis bacterial [Recovered/Resolved]
  - Arthritis [Recovered/Resolved]
  - Headache [Unknown]
  - Infection [Recovered/Resolved]
  - Crystal arthropathy [Recovered/Resolved]
  - Latent tuberculosis [Unknown]
  - Therapeutic product effect delayed [Unknown]

NARRATIVE: CASE EVENT DATE: 20181201
